FAERS Safety Report 5320623-5 (Version None)
Quarter: 2007Q2

REPORT INFORMATION
  Report Type: 
  Country: None (occurrence: None)
  Receive Date: 20070509
  Receipt Date: 20070427
  Transmission Date: 20071010
  Serious: Yes (Other)
  Sender: FDA-Public Use
  Company Number: US-PFIZER INC-2007005929

PATIENT
  Sex: Female
  Weight: 66.7 kg

DRUGS (1)
  1. CHANTIX [Suspect]
     Indication: SMOKING CESSATION THERAPY
     Route: 048
     Dates: start: 20070108, end: 20070115

REACTIONS (3)
  - DYSPNOEA [None]
  - FEELING COLD [None]
  - TREMOR [None]
